FAERS Safety Report 8429166-3 (Version None)
Quarter: 2012Q2

REPORT INFORMATION
  Report Type: 
  Country: None (occurrence: None)
  Receive Date: 20120323
  Receipt Date: 20110725
  Transmission Date: 20120825
  Serious: Yes (Hospitalization)
  Sender: FDA-Public Use
  Company Number: 163-21880-11072804

PATIENT
  Age: 61 Year
  Sex: Male
  Weight: 102.0593 kg

DRUGS (7)
  1. REMERON [Concomitant]
  2. REVLIMID [Suspect]
     Indication: MULTIPLE MYELOMA
     Dosage: 25 MG, QD X21 DAYS, PO
     Route: 048
     Dates: start: 20080911
  3. DEXAMETHASONE [Concomitant]
  4. AMBIEN [Concomitant]
  5. ASPIRIN [Concomitant]
  6. PAMIDRONATE DISODIUM [Concomitant]
  7. RITALIN [Concomitant]

REACTIONS (2)
  - STAPHYLOCOCCAL INFECTION [None]
  - COUGH [None]
